FAERS Safety Report 7204470-5 (Version None)
Quarter: 2010Q4

REPORT INFORMATION
  Report Type: 
  Country: None (occurrence: None)
  Receive Date: 20101230
  Receipt Date: 20101210
  Transmission Date: 20110411
  Serious: No
  Sender: FDA-Public Use
  Company Number: US-B.I. PHARMACEUTICALS,INC./RIDGEFIELD-2010-BP-14273BP

PATIENT
  Sex: Female

DRUGS (6)
  1. SPIRIVA [Suspect]
     Indication: ASTHMA
     Dosage: 18 MCG
     Route: 055
     Dates: start: 20100901
  2. PREDNISONE [Concomitant]
     Indication: ASTHMA
  3. ADVAIR [Concomitant]
     Indication: ASTHMA
  4. THEOPHYLLINE [Concomitant]
     Indication: ASTHMA
  5. SINGULAIR [Concomitant]
     Indication: ASTHMA
  6. ALBUTEROL [Concomitant]
     Indication: ASTHMA

REACTIONS (3)
  - HYPOAESTHESIA [None]
  - SINUSITIS [None]
  - STOMATITIS [None]
